FAERS Safety Report 25166262 (Version 1)
Quarter: 2025Q2

REPORT INFORMATION
  Report Type: Spontaneous
  Country: US (occurrence: US)
  Receive Date: 20250407
  Receipt Date: 20250407
  Transmission Date: 20250717
  Serious: No
  Sender: ABBVIE
  Company Number: US-ABBVIE-6206532

PATIENT

DRUGS (1)
  1. RINVOQ [Suspect]
     Active Substance: UPADACITINIB
     Indication: Product used for unknown indication
     Route: 048
     Dates: start: 20250325

REACTIONS (4)
  - Neuralgia [Recovered/Resolved]
  - Migraine [Unknown]
  - Hypoaesthesia [Unknown]
  - Oedema [Unknown]

NARRATIVE: CASE EVENT DATE: 20250301
